FAERS Safety Report 11983280 (Version 1)
Quarter: 2016Q1

REPORT INFORMATION
  Report Type: Spontaneous
  Country: IN (occurrence: IN)
  Receive Date: 20160201
  Receipt Date: 20160201
  Transmission Date: 20160526
  Serious: Yes (Death)
  Sender: FDA-Public Use
  Company Number: IN-ASTELLAS-2016US003395

PATIENT
  Age: 56 Year
  Sex: Male

DRUGS (1)
  1. ADVAGRAF [Suspect]
     Active Substance: TACROLIMUS
     Indication: PROPHYLAXIS AGAINST TRANSPLANT REJECTION
     Dosage: UNK, UNKNOWN FREQ.
     Route: 048

REACTIONS (1)
  - Death [Fatal]

NARRATIVE: CASE EVENT DATE: 2015
